FAERS Safety Report 6277482-6 (Version None)
Quarter: 2009Q3

REPORT INFORMATION
  Report Type: 
  Country: None (occurrence: None)
  Receive Date: 20090717
  Receipt Date: 20090717
  Transmission Date: 20100115
  Serious: No
  Sender: FDA-Public Use
  Company Number: None

PATIENT
  Age: 55 Year
  Sex: Male
  Weight: 80.7403 kg

DRUGS (1)
  1. ZICAM COLD REMEDY NASAL GEL 15ML, NDC 62750-003-10 [Suspect]
     Indication: NASOPHARYNGITIS
     Dosage: SWAB DAILY ENDOSINUSIAL
     Route: 006
     Dates: start: 20030701, end: 20030714

REACTIONS (2)
  - ANOSMIA [None]
  - HYPOGEUSIA [None]
